FAERS Safety Report 12833308 (Version 1)
Quarter: 2016Q4

REPORT INFORMATION
  Report Type: Report from Study
  Country: US (occurrence: US)
  Receive Date: 20161010
  Receipt Date: 20161010
  Transmission Date: 20170207
  Serious: Yes (Hospitalization)
  Sender: FDA-Public Use
  Company Number: US-ACTELION-A-US2016-143276

PATIENT
  Age: 75 Year
  Sex: Female

DRUGS (22)
  1. UPTRAVI [Suspect]
     Active Substance: SELEXIPAG
     Dosage: 400 MCG QAM, 200 MCG QPM
     Route: 048
     Dates: start: 20160924, end: 20160924
  2. XYZAL [Concomitant]
     Active Substance: LEVOCETIRIZINE DIHYDROCHLORIDE
  3. ADCIRCA [Concomitant]
     Active Substance: TADALAFIL
  4. ALLOPURINOL. [Concomitant]
     Active Substance: ALLOPURINOL
  5. UPTRAVI [Suspect]
     Active Substance: SELEXIPAG
     Indication: PULMONARY ARTERIAL HYPERTENSION
     Dosage: 400 MCG, BID
     Route: 048
     Dates: start: 20160913, end: 20160922
  6. ZENPEP [Concomitant]
     Active Substance: PANCRELIPASE AMYLASE\PANCRELIPASE LIPASE\PANCRELIPASE PROTEASE
  7. FUROSEMIDE. [Concomitant]
     Active Substance: FUROSEMIDE
  8. METFORMIN [Concomitant]
     Active Substance: METFORMIN HYDROCHLORIDE
  9. MECLIZINE [Concomitant]
     Active Substance: MECLIZINE HYDROCHLORIDE
  10. GABAPENTIN. [Concomitant]
     Active Substance: GABAPENTIN
  11. OMNARIS [Concomitant]
     Active Substance: CICLESONIDE
  12. HYDROCODONE [Concomitant]
     Active Substance: HYDROCODONE
  13. GLIMEPIRIDE. [Concomitant]
     Active Substance: GLIMEPIRIDE
  14. UPTRAVI [Suspect]
     Active Substance: SELEXIPAG
     Dosage: 200 MCG, UNK
     Route: 048
     Dates: start: 20160925, end: 20160926
  15. TRACLEER [Suspect]
     Active Substance: BOSENTAN
     Indication: PULMONARY ARTERIAL HYPERTENSION
     Dosage: 125 MG, BID
     Route: 048
     Dates: start: 20120727
  16. UPTRAVI [Suspect]
     Active Substance: SELEXIPAG
     Dosage: 600 MCG, BID
     Route: 048
     Dates: start: 20160923, end: 20160924
  17. CARVEDILOL. [Concomitant]
     Active Substance: CARVEDILOL
  18. ALPRAZOLAM. [Concomitant]
     Active Substance: ALPRAZOLAM
  19. POTASSIUM [Concomitant]
     Active Substance: POTASSIUM
  20. ZOLPIDEM [Concomitant]
     Active Substance: ZOLPIDEM\ZOLPIDEM TARTRATE
  21. HYDROXYZINE [Concomitant]
     Active Substance: HYDROXYZINE\HYDROXYZINE HYDROCHLORIDE
  22. CARVEDILOL. [Concomitant]
     Active Substance: CARVEDILOL

REACTIONS (7)
  - Incoherent [Recovered/Resolved]
  - Arthralgia [Recovered/Resolved]
  - Palpitations [Recovered/Resolved]
  - Chest discomfort [Recovered/Resolved]
  - Headache [Recovered/Resolved]
  - Oxygen saturation abnormal [Recovered/Resolved]
  - Heart rate increased [Recovered/Resolved]

NARRATIVE: CASE EVENT DATE: 20160918
